FAERS Safety Report 13706288 (Version 1)
Quarter: 2017Q2

REPORT INFORMATION
  Report Type: Spontaneous
  Country: US (occurrence: US)
  Receive Date: 20170630
  Receipt Date: 20170630
  Transmission Date: 20170830
  Serious: No
  Sender: FDA-Public Use
  Company Number: US-SA-2017SA080438

PATIENT
  Sex: Female

DRUGS (1)
  1. PRIFTIN [Suspect]
     Active Substance: RIFAPENTINE
     Indication: LATENT TUBERCULOSIS
     Dosage: PRESCRIBED PRIFTIN 750 MG (5 TABLETS) ONCE Q WEEK
     Route: 065
     Dates: start: 20170420

REACTIONS (2)
  - Urinary tract infection [Unknown]
  - Blood urine present [Unknown]

NARRATIVE: CASE EVENT DATE: 20170427
